FAERS Safety Report 5405232-1 (Version None)
Quarter: 2007Q3

REPORT INFORMATION
  Report Type: 
  Country: None (occurrence: None)
  Receive Date: 20070803
  Receipt Date: 20070724
  Transmission Date: 20080115
  Serious: Yes (Hospitalization)
  Sender: FDA-Public Use
  Company Number: US-ROCHE-502579

PATIENT
  Age: 58 Year
  Sex: Female

DRUGS (2)
  1. PEGASYS [Suspect]
     Route: 065
     Dates: start: 20070101, end: 20070401
  2. COPEGUS [Suspect]
     Route: 065
     Dates: start: 20070101, end: 20070401

REACTIONS (6)
  - ALOPECIA [None]
  - FURUNCLE [None]
  - HAEMORRHOIDS [None]
  - PRURITUS [None]
  - RASH ERYTHEMATOUS [None]
  - SKIN ULCER [None]
